FAERS Safety Report 9915713 (Version 1)
Quarter: 2014Q1

REPORT INFORMATION
  Report Type: Spontaneous
  Country: GH (occurrence: None)
  Receive Date: 20140218
  Receipt Date: 20140218
  Transmission Date: 20141002
  Serious: Yes (Other)
  Sender: FDA-Public Use
  Company Number: 2014P1001273

PATIENT
  Age: 1 Day
  Sex: Male
  Weight: 2.8 kg

DRUGS (2)
  1. PYRIMETHAMINE [Suspect]
     Indication: MALARIA PROPHYLAXIS
     Route: 064
  2. SULFADOXINE [Suspect]
     Indication: MALARIA PROPHYLAXIS
     Route: 064

REACTIONS (5)
  - Premature baby [None]
  - Congenital malaria [None]
  - Plasmodium falciparum infection [None]
  - Twin pregnancy [None]
  - Maternal drugs affecting foetus [None]
